FAERS Safety Report 5664726-4 (Version None)
Quarter: 2008Q1

REPORT INFORMATION
  Report Type: 
  Country: None (occurrence: None)
  Receive Date: 20080314
  Receipt Date: 20080310
  Transmission Date: 20080703
  Serious: Yes (Hospitalization)
  Sender: FDA-Public Use
  Company Number: JP-BRISTOL-MYERS SQUIBB COMPANY-14114045

PATIENT
  Age: 67 Year
  Sex: Female

DRUGS (9)
  1. TAXOL [Suspect]
     Indication: UTERINE CANCER
     Dosage: 1STCYCON 23-MAY-07,2NDCYC ON 20-JUN-07,3RDCYC ON 11-JUL-07,4THCYC ON 15-AUG-07,5THCYC ON 05-SEP-07.
     Route: 041
     Dates: start: 20071024, end: 20071024
  2. PARAPLATIN [Suspect]
     Indication: UTERINE CANCER
     Dosage: 1STCYCON 23-MAY-07,2NDCYC ON 20-JUN-07,3RDCYC ON 11-JUL-07,4THCYC ON 15-AUG-07,5THCYC ON 05-SEP-07.
     Route: 041
     Dates: start: 20071024, end: 20071024
  3. GRAN [Concomitant]
     Route: 058
     Dates: start: 20071119, end: 20071122
  4. KYTRIL [Concomitant]
     Route: 041
     Dates: start: 20070523, end: 20071024
  5. NASEA [Concomitant]
     Route: 048
     Dates: start: 20070523, end: 20071024
  6. DEXAMETHASONE SODIUM PHOSPHATE [Concomitant]
     Indication: PREMEDICATION
     Route: 042
     Dates: start: 20070523, end: 20071024
  7. DIPHENHYDRAMINE HCL [Concomitant]
     Route: 048
     Dates: start: 20070523, end: 20071024
  8. RANITIDINE HCL [Concomitant]
     Indication: PREMEDICATION
     Route: 042
     Dates: start: 20070523, end: 20071024
  9. SHAKUYAKU-KANZO-TO [Concomitant]
     Route: 048
     Dates: start: 20070620, end: 20071024

REACTIONS (2)
  - GASTROINTESTINAL PERFORATION [None]
  - WHITE BLOOD CELL COUNT DECREASED [None]
